FAERS Safety Report 5476851-1 (Version None)
Quarter: 2007Q4

REPORT INFORMATION
  Report Type: 
  Country: None (occurrence: None)
  Receive Date: 20071004
  Receipt Date: 20070924
  Transmission Date: 20080405
  Serious: Yes (Other)
  Sender: FDA-Public Use
  Company Number: US-ROCHE-521090

PATIENT
  Age: 67 Year
  Sex: Female
  Weight: 59.9 kg

DRUGS (2)
  1. CAPECITABINE [Suspect]
     Indication: BREAST CANCER
     Route: 048
     Dates: start: 20070214
  2. LEVOXYL [Concomitant]
     Indication: THYROID CANCER

REACTIONS (1)
  - THYROID FUNCTION TEST ABNORMAL [None]
